FAERS Safety Report 7312094-4 (Version None)
Quarter: 2011Q1

REPORT INFORMATION
  Report Type: 
  Country: None (occurrence: None)
  Receive Date: 20110224
  Receipt Date: 20110211
  Transmission Date: 20110831
  Serious: Yes (Hospitalization)
  Sender: FDA-Public Use
  Company Number: US-ELI_LILLY_AND_COMPANY-US201101003098

PATIENT
  Age: 59 Year
  Sex: Female

DRUGS (1)
  1. FORTEO [Suspect]
     Indication: OSTEOPOROSIS
     Dosage: UNK, UNK
     Route: 065
     Dates: start: 20090801

REACTIONS (6)
  - VOMITING [None]
  - HYPERTENSION [None]
  - HYPERHIDROSIS [None]
  - EAR DISCOMFORT [None]
  - VISUAL ACUITY REDUCED [None]
  - INJECTION SITE HAEMATOMA [None]
